FAERS Safety Report 7089282-8 (Version None)
Quarter: 2010Q4

REPORT INFORMATION
  Report Type: 
  Country: None (occurrence: None)
  Receive Date: 20101108
  Receipt Date: 20101027
  Transmission Date: 20110411
  Serious: Yes (Hospitalization)
  Sender: FDA-Public Use
  Company Number: SI-B.I. PHARMACEUTICALS,INC./RIDGEFIELD-2010-AP-00567AP

PATIENT
  Sex: Male
  Weight: 70 kg

DRUGS (5)
  1. MICARDIS [Suspect]
     Indication: HYPERTENSION
     Dosage: 80 MG
     Route: 048
     Dates: start: 20100414, end: 20101008
  2. ADALAT [Concomitant]
     Dosage: 60 MG
     Route: 048
  3. RAWEL SR [Concomitant]
     Dosage: 1.5 MG
     Route: 048
  4. ASPIRIN [Concomitant]
     Dosage: 100 MG
     Route: 048
  5. ATORIS [Concomitant]
     Dosage: 40 MG
     Route: 048

REACTIONS (1)
  - LIP OEDEMA [None]
